FAERS Safety Report 7301498-1 (Version None)
Quarter: 2011Q1

REPORT INFORMATION
  Report Type: 
  Country: None (occurrence: None)
  Receive Date: 20110218
  Receipt Date: 20100812
  Transmission Date: 20110831
  Serious: Yes (Other)
  Sender: FDA-Public Use
  Company Number: US-BRISTOL-MYERS SQUIBB COMPANY-15239155

PATIENT
  Sex: Female

DRUGS (1)
  1. KENALOG-10 [Suspect]

REACTIONS (1)
  - ANAPHYLACTIC REACTION [None]
